FAERS Safety Report 24714399 (Version 1)
Quarter: 2024Q4

REPORT INFORMATION
  Report Type: Spontaneous
  Country: CZ (occurrence: CZ)
  Receive Date: 20241209
  Receipt Date: 20241209
  Transmission Date: 20250115
  Serious: Yes (Other)
  Sender: ALEXION PHARMACEUTICALS
  Company Number: CZ-ASTRAZENECA-202412EEA003239CZ

PATIENT
  Age: 72 Year

DRUGS (4)
  1. TAGRISSO [Suspect]
     Active Substance: OSIMERTINIB
     Dosage: UNK
     Route: 065
  2. FORMOTEROL FUMARATE [Concomitant]
     Active Substance: FORMOTEROL FUMARATE
  3. Purinol [Concomitant]
  4. AMLODIPINE\BISOPROLOL [Concomitant]
     Active Substance: AMLODIPINE\BISOPROLOL

REACTIONS (6)
  - Neutropenia [Unknown]
  - Thrombocytopenia [Unknown]
  - Renal failure [Unknown]
  - Anaemia [Unknown]
  - Respiratory tract infection viral [Unknown]
  - Impaired healing [Unknown]
